FAERS Safety Report 4796594-7 (Version None)
Quarter: 2005Q4

REPORT INFORMATION
  Report Type: 
  Country: None (occurrence: None)
  Receive Date: 20051007
  Receipt Date: 20050923
  Transmission Date: 20060501
  Serious: Yes (Hospitalization)
  Sender: FDA-Public Use
  Company Number: 02100-USA-04-0187

PATIENT
  Age: 38 Year
  Sex: Female

DRUGS (5)
  1. PLETAL [Suspect]
     Indication: PROPHYLAXIS
     Dosage: 100 MG BID ORAL
     Route: 048
     Dates: start: 20030820, end: 20030827
  2. PLETAL [Suspect]
     Indication: THROMBOSIS IN DEVICE
     Dosage: 100 MG BID ORAL
     Route: 048
     Dates: start: 20030820, end: 20030827
  3. ASPIRIN [Suspect]
     Indication: PROPHYLAXIS
     Dosage: 200 MG QD ORAL
     Route: 048
     Dates: start: 20030820, end: 20030827
  4. ASPIRIN [Suspect]
     Indication: THROMBOSIS IN DEVICE
     Dosage: 200 MG QD ORAL
     Route: 048
     Dates: start: 20030820, end: 20030827
  5. LIPITOR [Concomitant]

REACTIONS (1)
  - THROMBOSIS IN DEVICE [None]
